FAERS Safety Report 7562122-6 (Version None)
Quarter: 2011Q2

REPORT INFORMATION
  Report Type: 
  Country: None (occurrence: None)
  Receive Date: 20110622
  Receipt Date: 20110613
  Transmission Date: 20111010
  Serious: Yes (Hospitalization)
  Sender: FDA-Public Use
  Company Number: US-BIOGENIDEC-2011BI022562

PATIENT
  Age: 66 Year
  Sex: Female

DRUGS (3)
  1. WARFARIN SODIUM [Concomitant]
  2. ASPIRIN [Concomitant]
  3. AVONEX [Suspect]
     Indication: MULTIPLE SCLEROSIS
     Route: 030

REACTIONS (1)
  - HAEMORRHAGIC DISORDER [None]
